APPROVED DRUG PRODUCT: FLUOXETINE HYDROCHLORIDE
Active Ingredient: FLUOXETINE HYDROCHLORIDE
Strength: EQ 20MG BASE
Dosage Form/Route: TABLET;ORAL
Application: A075872 | Product #002
Applicant: TEVA PHARMACEUTICALS USA INC
Approved: Jan 4, 2019 | RLD: No | RS: No | Type: DISCN